FAERS Safety Report 13004311 (Version 3)
Quarter: 2017Q1

REPORT INFORMATION
  Report Type: Spontaneous
  Country: US (occurrence: US)
  Receive Date: 20161206
  Receipt Date: 20170125
  Transmission Date: 20170428
  Serious: Yes (Hospitalization, Other)
  Sender: FDA-Public Use
  Company Number: US-AMGEN-USASP2016170679

PATIENT
  Age: 61 Year
  Sex: Female
  Weight: 61.22 kg

DRUGS (8)
  1. LEFLUNOMIDE. [Suspect]
     Active Substance: LEFLUNOMIDE
     Indication: PRODUCT USED FOR UNKNOWN INDICATION
     Route: 065
  2. ENBREL [Suspect]
     Active Substance: ETANERCEPT
     Dosage: UNK
     Route: 065
  3. PREDNISONE. [Concomitant]
     Active Substance: PREDNISONE
     Indication: JOINT RANGE OF MOTION DECREASED
     Dosage: 1 OR 2 MG, UNK
     Dates: start: 2013
  4. ARMOUR THYROID [Concomitant]
     Active Substance: THYROID, PORCINE
     Indication: HYPOTHYROIDISM
     Dosage: 60 MG, ONCE IN THE MORNING
     Dates: start: 2002
  5. ADVIL [Concomitant]
     Active Substance: IBUPROFEN
     Indication: PAIN
     Dosage: 200 MG, UNK
  6. PREDNISONE. [Concomitant]
     Active Substance: PREDNISONE
     Dosage: 20 OR 25 MG
     Dates: start: 2012
  7. ENBREL [Suspect]
     Active Substance: ETANERCEPT
     Indication: RHEUMATOID ARTHRITIS
     Dosage: UNK UNK, EVERY WEEK
     Route: 065
     Dates: start: 20160926
  8. XELJANZ [Suspect]
     Active Substance: TOFACITINIB CITRATE
     Indication: RHEUMATOID ARTHRITIS
     Dosage: 5 MG, BID
     Route: 048
     Dates: start: 20161114, end: 20161121

REACTIONS (20)
  - Eye pruritus [Unknown]
  - Eye swelling [Unknown]
  - Photosensitivity reaction [Unknown]
  - Cartilage injury [Unknown]
  - Joint range of motion decreased [Unknown]
  - Injection site erythema [Unknown]
  - Lacrimation increased [Unknown]
  - Skin exfoliation [Recovered/Resolved]
  - Injection site reaction [Unknown]
  - Gait disturbance [Unknown]
  - Injection site swelling [Recovering/Resolving]
  - Dry skin [Recovered/Resolved]
  - Eye irritation [Unknown]
  - Ocular hyperaemia [Unknown]
  - Erythema [Recovered/Resolved]
  - Pruritus [Unknown]
  - Injection site warmth [Unknown]
  - Rash generalised [Recovered/Resolved]
  - Swelling face [Recovered/Resolved]
  - Peripheral swelling [Unknown]

NARRATIVE: CASE EVENT DATE: 2016
